FAERS Safety Report 6329773-8 (Version None)
Quarter: 2009Q3

REPORT INFORMATION
  Report Type: 
  Country: None (occurrence: None)
  Receive Date: 20090826
  Receipt Date: 20090821
  Transmission Date: 20100115
  Serious: Yes (Life-Threatening)
  Sender: FDA-Public Use
  Company Number: PHEH2009US09715

PATIENT
  Sex: Female

DRUGS (2)
  1. GLEEVEC [Suspect]
     Dosage: UNK
     Dates: start: 20050713
  2. GLEEVEC [Suspect]
     Dosage: 400 MG, UNK
     Dates: start: 20080901

REACTIONS (9)
  - ABDOMINAL PAIN UPPER [None]
  - BONE PAIN [None]
  - FATIGUE [None]
  - FLUID RETENTION [None]
  - INTERVERTEBRAL DISC DISORDER [None]
  - MYALGIA [None]
  - NAUSEA [None]
  - RENAL DISORDER [None]
  - SPINAL OPERATION [None]
